FAERS Safety Report 6165126-3 (Version None)
Quarter: 2009Q2

REPORT INFORMATION
  Report Type: 
  Country: None (occurrence: None)
  Receive Date: 20090421
  Receipt Date: 20090421
  Transmission Date: 20091009
  Serious: Yes (Hospitalization)
  Sender: FDA-Public Use
  Company Number: None

PATIENT
  Sex: Male
  Weight: 102.0593 kg

DRUGS (4)
  1. LANOXIN [Suspect]
     Indication: ARRHYTHMIA
     Dosage: ONE DAILY PO
     Route: 048
     Dates: start: 20090206, end: 20090415
  2. LANOXIN [Suspect]
     Indication: CARDIAC FAILURE
     Dosage: ONE DAILY PO
     Route: 048
     Dates: start: 20090206, end: 20090415
  3. DIGOXIN [Suspect]
     Indication: ARRHYTHMIA
     Dosage: ONE EVERY OTHER DAY PO
     Route: 048
     Dates: start: 20090224, end: 20090415
  4. DIGOXIN [Suspect]
     Indication: CARDIAC FAILURE
     Dosage: ONE EVERY OTHER DAY PO
     Route: 048
     Dates: start: 20090224, end: 20090415

REACTIONS (4)
  - GAIT DISTURBANCE [None]
  - HYPERSOMNIA [None]
  - MUSCULAR WEAKNESS [None]
  - RENAL TUBULAR NECROSIS [None]
